FAERS Safety Report 10370565 (Version 1)
Quarter: 2014Q1

REPORT INFORMATION
  Report Type: Spontaneous
  Country: US (occurrence: None)
  Receive Date: 20140306
  Receipt Date: 20140306
  Transmission Date: 20141002
  Serious: Yes (Hospitalization)
  Sender: FDA-Public Use
  Company Number: 163-21880-13011059

PATIENT
  Age: 64 Year
  Sex: Male

DRUGS (9)
  1. REVLIMID [Suspect]
     Indication: PLASMA CELL MYELOMA
     Dosage: 25 MG, 7 IN 14 D, PO
     Route: 048
     Dates: start: 20110711
  2. LISINOPRIL (LISINOPRIL) (TABLETS) [Concomitant]
  3. WALGREENS SHORT N/S (SODIUM CHLORIDE) (SPRAY (NOT INHALATION)) [Concomitant]
  4. HUMALOG INSULIN (INSULIN LISPRO) (UNKNOWN) [Concomitant]
  5. LANTUS INSULIN (INSULIN GLARGINE) (UNKNOWN) [Concomitant]
  6. ACYCLOVIR (ACICLOVIR) (TABLETS) [Concomitant]
  7. NEO/POLY/GRAM (NEOMYCIN POLYMIXIN) (SOLUTION) [Concomitant]
  8. GABAPENTIN (GABAPENTIN) (CAPSULES) [Concomitant]
  9. CYCLOSPORIN (CICLOSPORIN) [Concomitant]

REACTIONS (1)
  - Influenza [None]
